FAERS Safety Report 12409336 (Version 1)
Quarter: 2016Q2

REPORT INFORMATION
  Report Type: Spontaneous
  Country: US (occurrence: US)
  Receive Date: 20160526
  Receipt Date: 20160526
  Transmission Date: 20160815
  Serious: Yes (Other)
  Sender: FDA-Public Use
  Company Number: US-SA-2016SA097509

PATIENT
  Age: 62 Year
  Sex: Female

DRUGS (2)
  1. OMNITROPE [Concomitant]
     Active Substance: SOMATROPIN
  2. LANTUS [Suspect]
     Active Substance: INSULIN GLARGINE
     Indication: DIABETES MELLITUS
     Route: 065

REACTIONS (3)
  - Blood glucose increased [Unknown]
  - Hypothalamo-pituitary disorder [Unknown]
  - Thyroid disorder [Unknown]
